FAERS Safety Report 11934920 (Version 1)
Quarter: 2016Q1

REPORT INFORMATION
  Report Type: Spontaneous
  Country: US (occurrence: None)
  Receive Date: 20160120
  Receipt Date: 20160120
  Transmission Date: 20160526
  Serious: Yes (Other)
  Sender: FDA-Public Use
  Company Number: None

PATIENT
  Age: 25 Year
  Sex: Female
  Weight: 49.9 kg

DRUGS (1)
  1. AREX SINSIN PAS [Suspect]
     Active Substance: CAMPHOR (SYNTHETIC)\LEVOMENTHOL\METHYL SALICYLATE\PEPPERMINT OIL\ZINC OXIDE
     Indication: BACK PAIN
     Dates: start: 20160111, end: 20160113

REACTIONS (6)
  - Application site dryness [None]
  - Device difficult to use [None]
  - Product adhesion issue [None]
  - Application site pain [None]
  - Application site erythema [None]
  - Application site exfoliation [None]

NARRATIVE: CASE EVENT DATE: 20160113
